FAERS Safety Report 23934909 (Version 2)
Quarter: 2024Q3

REPORT INFORMATION
  Report Type: Spontaneous
  Country: US (occurrence: US)
  Receive Date: 20240604
  Receipt Date: 20240726
  Transmission Date: 20241017
  Serious: Yes (Hospitalization, Other)
  Sender: BRISTOL MYERS SQUIBB
  Company Number: US-BRISTOL-MYERS SQUIBB COMPANY-2024-087111

PATIENT
  Age: 58 Year
  Sex: Male

DRUGS (1)
  1. SPRYCEL [Suspect]
     Active Substance: DASATINIB
     Indication: Chronic myeloid leukaemia
     Route: 048
     Dates: end: 20240415

REACTIONS (5)
  - Colitis [Recovered/Resolved]
  - Enteritis [Recovered/Resolved]
  - Inguinal hernia, obstructive [Recovered/Resolved]
  - Dyspnoea [Unknown]
  - Cytopenia [Unknown]

NARRATIVE: CASE EVENT DATE: 20240415
